FAERS Safety Report 7221562-5 (Version None)
Quarter: 2011Q1

REPORT INFORMATION
  Report Type: 
  Country: None (occurrence: None)
  Receive Date: 20110112
  Receipt Date: 20110111
  Transmission Date: 20110831
  Serious: Yes (Other)
  Sender: FDA-Public Use
  Company Number: JP-PFIZER INC-2010179712

PATIENT
  Age: 87 Year
  Sex: Female

DRUGS (2)
  1. ALDACTONE [Suspect]
  2. NORVASC [Suspect]

REACTIONS (1)
  - BRADYCARDIA [None]
